FAERS Safety Report 9100302 (Version 1)
Quarter: 2013Q1

REPORT INFORMATION
  Report Type: Spontaneous
  Country: US (occurrence: US)
  Receive Date: 20130215
  Receipt Date: 20130215
  Transmission Date: 20140127
  Serious: No
  Sender: FDA-Public Use
  Company Number: US-009507513-1201USA01931

PATIENT
  Sex: Female

DRUGS (2)
  1. JANUVIA [Suspect]
     Indication: TYPE 2 DIABETES MELLITUS
     Dosage: CUTS 500 MG TABLET
     Route: 048
     Dates: start: 20111201
  2. JANUVIA [Suspect]
     Dosage: 250 MG, BID
     Route: 048
     Dates: start: 20111201

REACTIONS (4)
  - Abdominal pain upper [Recovering/Resolving]
  - Overdose [Unknown]
  - Wrong technique in drug usage process [Unknown]
  - Inappropriate schedule of drug administration [Unknown]
